FAERS Safety Report 8578723-2 (Version None)
Quarter: 2012Q3

REPORT INFORMATION
  Report Type: 
  Country: None (occurrence: None)
  Receive Date: 20120808
  Receipt Date: 20120806
  Transmission Date: 20120928
  Serious: No
  Sender: FDA-Public Use
  Company Number: US-PFIZER INC-2012190902

PATIENT

DRUGS (1)
  1. NORVASC [Suspect]

REACTIONS (2)
  - GAIT DISTURBANCE [None]
  - PAIN [None]
